FAERS Safety Report 15980611 (Version 3)
Quarter: 2019Q1

REPORT INFORMATION
  Report Type: Spontaneous
  Country: CA (occurrence: CA)
  Receive Date: 20190219
  Receipt Date: 20190226
  Transmission Date: 20190418
  Serious: Yes (Other)
  Sender: FDA-Public Use
  Company Number: CA-PFIZER INC-2019064129

PATIENT
  Age: 44 Year
  Sex: Male

DRUGS (2)
  1. HYDROCORTISONE ACETATE. [Suspect]
     Active Substance: HYDROCORTISONE ACETATE
     Indication: HAEMORRHOIDS
     Dosage: UNK
     Route: 061
  2. PROCTOSEDYL [Suspect]
     Active Substance: DIBUCAINE HYDROCHLORIDE\HYDROCORTISONE
     Indication: HAEMORRHOIDS
     Dosage: UNK
     Route: 061

REACTIONS (2)
  - Eczema [Recovering/Resolving]
  - Drug eruption [Unknown]
